FAERS Safety Report 5879063-2 (Version None)
Quarter: 2008Q3

REPORT INFORMATION
  Report Type: 
  Country: None (occurrence: None)
  Receive Date: 20080912
  Receipt Date: 20080903
  Transmission Date: 20090109
  Serious: Yes (Hospitalization)
  Sender: FDA-Public Use
  Company Number: GB-NOVOPROD-279066

PATIENT
  Sex: Female

DRUGS (2)
  1. LEVEMIR [Suspect]
     Dosage: 70 IU, QD
     Dates: start: 20080717
  2. HUMALOG [Concomitant]

REACTIONS (5)
  - BLOOD GLUCOSE INCREASED [None]
  - CARDIAC FAILURE [None]
  - FLUID RETENTION [None]
  - RENAL DISORDER [None]
  - SOMNOLENCE [None]
